FAERS Safety Report 5007254-1 (Version None)
Quarter: 2006Q2

REPORT INFORMATION
  Report Type: 
  Country: None (occurrence: None)
  Receive Date: 20060517
  Receipt Date: 20060502
  Transmission Date: 20061013
  Serious: Yes (Hospitalization)
  Sender: FDA-Public Use
  Company Number: 2006-142000-NL

PATIENT
  Age: 20 Year
  Sex: Female
  Weight: 113.4 kg

DRUGS (2)
  1. NUVARING [Suspect]
     Indication: CONTRACEPTION
     Dosage: VAGINAL, 3 WEEKS IN/1 WEEK OUT
     Route: 067
     Dates: start: 20051105, end: 20051106
  2. NUVARING [Suspect]
     Indication: CONTRACEPTION
     Dosage: VAGINAL, 3 WEEKS IN/ 1 WEEK OUT
     Route: 067
     Dates: start: 20060418, end: 20060427

REACTIONS (6)
  - AMENORRHOEA [None]
  - BREAST PAIN [None]
  - BREAST SWELLING [None]
  - CATHETER RELATED INFECTION [None]
  - ESCHERICHIA BACTERAEMIA [None]
  - STAPHYLOCOCCAL INFECTION [None]
